FAERS Safety Report 19909145 (Version 1)
Quarter: 2021Q4

REPORT INFORMATION
  Report Type: Spontaneous
  Country: US (occurrence: US)
  Receive Date: 20211001
  Receipt Date: 20211001
  Transmission Date: 20220303
  Serious: No
  Sender: FDA-Public Use
  Company Number: US-009507513-2110USA000196

PATIENT
  Sex: Female

DRUGS (28)
  1. KEYTRUDA [Suspect]
     Active Substance: PEMBROLIZUMAB
  2. LENVATINIB MESYLATE [Suspect]
     Active Substance: LENVATINIB MESYLATE
     Indication: Uterine cancer
     Dosage: 18 MILLIGRAM, QD
     Route: 048
     Dates: start: 20210108
  3. DIETARY SUPPLEMENT\RESVERATROL [Concomitant]
     Active Substance: DIETARY SUPPLEMENT\RESVERATROL
  4. TRAMADOL HCL [Concomitant]
     Active Substance: TRAMADOL HYDROCHLORIDE
  5. ITRACONAZOLE [Concomitant]
     Active Substance: ITRACONAZOLE
  6. SYNTHROID [Concomitant]
     Active Substance: LEVOTHYROXINE SODIUM
  7. TRANEXAMIC ACID [Concomitant]
     Active Substance: TRANEXAMIC ACID
  8. VITAMIN B12 [Concomitant]
     Active Substance: CYANOCOBALAMIN
  9. PENTOXIFYLLINE [Concomitant]
     Active Substance: PENTOXIFYLLINE
  10. OMEPRAZOLE [Concomitant]
     Active Substance: OMEPRAZOLE
  11. LORATADINE [Concomitant]
     Active Substance: LORATADINE
  12. CURCUMIN [Concomitant]
     Active Substance: CURCUMIN
  13. METFORMIN HYDROCHLORIDE [Concomitant]
     Active Substance: METFORMIN HYDROCHLORIDE
  14. DOXYCYCLINE HYCLATE [Concomitant]
     Active Substance: DOXYCYCLINE HYCLATE
  15. DIETARY SUPPLEMENT\HERBALS\INDIAN FRANKINCENSE [Concomitant]
     Active Substance: DIETARY SUPPLEMENT\HERBALS\INDIAN FRANKINCENSE
  16. QUERCETIN DIHYDRATE [Concomitant]
  17. PRASTERONE [Concomitant]
     Active Substance: PRASTERONE
  18. OMEGA 3 CONCENTRATE [Concomitant]
  19. VITAMINS [Concomitant]
     Active Substance: VITAMINS
  20. VITAMIN D3 [Concomitant]
     Active Substance: CHOLECALCIFEROL
  21. SIMVASTATIN [Concomitant]
     Active Substance: SIMVASTATIN
  22. TMG [Concomitant]
  23. BERBERINE [Concomitant]
     Active Substance: BERBERINE
  24. LUTEOLIN [Concomitant]
  25. BROAD SPECTRUM ANTIFUNGAL [Concomitant]
  26. AZO [Concomitant]
     Active Substance: PHENAZOPYRIDINE HYDROCHLORIDE
  27. GLYCEMIC GUARD [Concomitant]
  28. BLACK SEED [ELWENDIA PERSICA OIL] [Concomitant]

REACTIONS (1)
  - Dysuria [Unknown]
